FAERS Safety Report 6856382-4 (Version None)
Quarter: 2010Q3

REPORT INFORMATION
  Report Type: 
  Country: None (occurrence: None)
  Receive Date: 20100715
  Receipt Date: 20100715
  Transmission Date: 20110219
  Serious: No
  Sender: FDA-Public Use
  Company Number: None

PATIENT
  Age: 60 Year
  Sex: Male
  Weight: 90.7194 kg

DRUGS (1)
  1. MERIDIA [Suspect]
     Indication: WEIGHT DECREASED
     Dosage: UNKNOWN 1 PO
     Route: 048
     Dates: start: 20091010, end: 20091110

REACTIONS (2)
  - CONDUCTION DISORDER [None]
  - TINNITUS [None]
